FAERS Safety Report 11476329 (Version 2)
Quarter: 2015Q4

REPORT INFORMATION
  Report Type: Spontaneous
  Country: US (occurrence: None)
  Receive Date: 20150909
  Receipt Date: 20151027
  Transmission Date: 20160304
  Serious: Yes (Other)
  Sender: FDA-Public Use
  Company Number: US-MDT-ADR-2015-01741

PATIENT
  Age: 46 Year
  Sex: Male

DRUGS (2)
  1. LIORESAL [Suspect]
     Active Substance: BACLOFEN
     Indication: MUSCLE SPASTICITY
     Dosage: 400 MCG/DAY
  2. BACLOFEN (ORAL) [Suspect]
     Active Substance: BACLOFEN
     Dosage: 10MG TID

REACTIONS (1)
  - No therapeutic response [None]
